FAERS Safety Report 6297399-0 (Version None)
Quarter: 2009Q3

REPORT INFORMATION
  Report Type: 
  Country: None (occurrence: None)
  Receive Date: 20090805
  Receipt Date: 20090722
  Transmission Date: 20100115
  Serious: Yes (Hospitalization)
  Sender: FDA-Public Use
  Company Number: FR-CELGENEUS-056-20484-09071520

PATIENT
  Sex: Female

DRUGS (7)
  1. INNOHEP [Suspect]
     Indication: PROPHYLAXIS
     Route: 058
     Dates: start: 20080520, end: 20090529
  2. PREVISCAN [Suspect]
     Indication: DRUG USE FOR UNKNOWN INDICATION
     Route: 048
     Dates: start: 20080201, end: 20080501
  3. PREVISCAN [Suspect]
     Route: 065
     Dates: start: 20080530
  4. IMUREL [Suspect]
     Indication: DRUG USE FOR UNKNOWN INDICATION
     Route: 048
     Dates: start: 20070401, end: 20080522
  5. REMICADE [Suspect]
     Indication: DRUG USE FOR UNKNOWN INDICATION
     Route: 051
     Dates: start: 20080218
  6. REMICADE [Suspect]
     Route: 051
     Dates: start: 20080304
  7. REMICADE [Suspect]
     Route: 051
     Dates: start: 20090328

REACTIONS (2)
  - CYTOLYTIC HEPATITIS [None]
  - HEPATITIS CHOLESTATIC [None]
